FAERS Safety Report 23347145 (Version 1)
Quarter: 2023Q4

REPORT INFORMATION
  Report Type: Spontaneous
  Country: CN (occurrence: CN)
  Receive Date: 20231228
  Receipt Date: 20231228
  Transmission Date: 20240110
  Serious: Yes (Hospitalization)
  Sender: FDA-Public Use
  Company Number: CN-009507513-2312CHN009850

PATIENT
  Age: 41 Year
  Sex: Male

DRUGS (6)
  1. KEYTRUDA [Suspect]
     Active Substance: PEMBROLIZUMAB
     Indication: Oesophageal carcinoma
     Dosage: 200 MG, D1, ONCE (REPORTED AS EVERY 21 DAYS (Q3W))
     Route: 041
     Dates: start: 20231107, end: 20231107
  2. CARBOPLATIN [Concomitant]
     Active Substance: CARBOPLATIN
     Indication: Oesophageal carcinoma
     Dosage: 500 MG, D1, ONCE (REPORTED AS EVERY 21 DAYS (Q3W)), IV DRIP
     Route: 041
     Dates: start: 20231107, end: 20231107
  3. PACLITAXEL [Concomitant]
     Active Substance: PACLITAXEL
     Indication: Oesophageal carcinoma
     Dosage: 400 MG, D1, ONCE (REPORTED AS EVERY 21 DAYS (Q3W)), IV DRIP
     Route: 041
     Dates: start: 20231107, end: 20231107
  4. SODIUM CHLORIDE [Concomitant]
     Active Substance: SODIUM CHLORIDE
     Dosage: 100 ML, D1, ONCE (REPORTED AS EVERY 21 DAYS (Q3W)), IV DRIP
     Route: 041
     Dates: start: 20231107, end: 20231107
  5. SODIUM CHLORIDE [Concomitant]
     Active Substance: SODIUM CHLORIDE
     Dosage: 100 ML, D1, ONCE (REPORTED AS EVERY 21 DAYS (Q3W)), IV DRIP
     Route: 041
     Dates: start: 20231107, end: 20231107
  6. DEXTROSE [Concomitant]
     Active Substance: DEXTROSE\DEXTROSE MONOHYDRATE
     Dosage: 250 ML, D1, ONCE (REPORTED AS EVERY 21 DAYS (Q3W)), IV DRIP
     Route: 041
     Dates: start: 20231107, end: 20231107

REACTIONS (5)
  - Aspartate aminotransferase increased [Recovering/Resolving]
  - Alanine aminotransferase increased [Recovering/Resolving]
  - Gamma-glutamyltransferase increased [Not Recovered/Not Resolved]
  - Blood alkaline phosphatase increased [Recovering/Resolving]
  - Product use issue [Unknown]

NARRATIVE: CASE EVENT DATE: 20231107
